FAERS Safety Report 14210956 (Version 2)
Quarter: 2018Q1

REPORT INFORMATION
  Report Type: Spontaneous
  Country: US (occurrence: US)
  Receive Date: 20171121
  Receipt Date: 20180209
  Transmission Date: 20180508
  Serious: Yes (Death, Hospitalization)
  Sender: FDA-Public Use
  Company Number: US-JNJFOC-20171010284

PATIENT
  Age: 56 Year
  Sex: Male
  Weight: 82.1 kg

DRUGS (1)
  1. XARELTO [Suspect]
     Active Substance: RIVAROXABAN
     Indication: PRODUCT USED FOR UNKNOWN INDICATION
     Route: 048
     Dates: start: 201401, end: 20151016

REACTIONS (2)
  - Central nervous system infection [Fatal]
  - Haemorrhage intracranial [Fatal]

NARRATIVE: CASE EVENT DATE: 20151016
